FAERS Safety Report 12947699 (Version 1)
Quarter: 2016Q4

REPORT INFORMATION
  Report Type: Report from Study
  Country: US (occurrence: US)
  Receive Date: 20161116
  Receipt Date: 20161116
  Transmission Date: 20170207
  Serious: Yes (Hospitalization)
  Sender: FDA-Public Use
  Company Number: US-BIOGEN-2010BI010529

PATIENT
  Age: 44 Year
  Sex: Female
  Weight: 77.18 kg

DRUGS (2)
  1. AVONEX [Suspect]
     Active Substance: INTERFERON BETA-1A
     Route: 030
     Dates: start: 2003
  2. AVONEX [Suspect]
     Active Substance: INTERFERON BETA-1A
     Indication: MULTIPLE SCLEROSIS
     Route: 030
     Dates: start: 20020307, end: 2003

REACTIONS (2)
  - Multiple sclerosis relapse [Recovered/Resolved]
  - Lyme disease [Recovered/Resolved]

NARRATIVE: CASE EVENT DATE: 200908
